FAERS Safety Report 6180634-7 (Version None)
Quarter: 2009Q2

REPORT INFORMATION
  Report Type: 
  Country: None (occurrence: None)
  Receive Date: 20090506
  Receipt Date: 20090429
  Transmission Date: 20091009
  Serious: Yes (Hospitalization)
  Sender: FDA-Public Use
  Company Number: PHHY2009IT01762

PATIENT
  Sex: Female

DRUGS (3)
  1. TEGRETOL [Suspect]
     Indication: EPILEPSY
     Dosage: 200 MG, UNK
     Route: 048
     Dates: start: 20081024, end: 20081212
  2. STEROIDS NOS [Concomitant]
  3. TOPIRAMATE [Concomitant]

REACTIONS (5)
  - DERMATITIS BULLOUS [None]
  - GENERAL PHYSICAL HEALTH DETERIORATION [None]
  - PERIVASCULAR DERMATITIS [None]
  - SKIN EXFOLIATION [None]
  - STOMATITIS [None]
